FAERS Safety Report 6082452-7 (Version None)
Quarter: 2009Q1

REPORT INFORMATION
  Report Type: 
  Country: None (occurrence: None)
  Receive Date: 20090218
  Receipt Date: 20090209
  Transmission Date: 20090719
  Serious: Yes (Other)
  Sender: FDA-Public Use
  Company Number: FR-WATSON-2009-00982

PATIENT
  Sex: Female

DRUGS (2)
  1. TRELSTAR DEPOT [Suspect]
     Indication: FIBROMA
     Dosage: 3 MG, ONCE A MONTH
     Route: 030
     Dates: start: 20080828, end: 20081125
  2. HOMEOPATIC PREPARATION [Concomitant]
     Indication: DRUG USE FOR UNKNOWN INDICATION
     Dosage: UNK
     Route: 065

REACTIONS (12)
  - AFFECT LABILITY [None]
  - ANXIETY [None]
  - DISTURBANCE IN ATTENTION [None]
  - DYSMENORRHOEA [None]
  - HOT FLUSH [None]
  - HYPERTENSION [None]
  - INJECTION SITE PAIN [None]
  - METRORRHAGIA [None]
  - NAUSEA [None]
  - PALPITATIONS [None]
  - VERTIGO [None]
  - VISUAL IMPAIRMENT [None]
